FAERS Safety Report 15616131 (Version 1)
Quarter: 2018Q4

REPORT INFORMATION
  Report Type: Spontaneous
  Country: US (occurrence: US)
  Receive Date: 20181109
  Receipt Date: 20181109
  Transmission Date: 20190205
  Serious: No
  Sender: FDA-Public Use
  Company Number: None

PATIENT
  Age: 76 Year
  Sex: Female
  Weight: 51.75 kg

DRUGS (3)
  1. VALSARTAN. [Concomitant]
     Active Substance: VALSARTAN
  2. NITROGLYCERINE [Concomitant]
     Active Substance: NITROGLYCERIN
  3. LYRICA [Suspect]
     Active Substance: PREGABALIN
     Indication: PAIN
     Dosage: ?          QUANTITY:1 CAPSULE(S);?
     Route: 048

REACTIONS (5)
  - Balance disorder [None]
  - Decreased appetite [None]
  - Pain [None]
  - Drug ineffective [None]
  - Depressed level of consciousness [None]

NARRATIVE: CASE EVENT DATE: 20181002
